FAERS Safety Report 5358824-2 (Version None)
Quarter: 2007Q2

REPORT INFORMATION
  Report Type: 
  Country: None (occurrence: None)
  Receive Date: 20070615
  Receipt Date: 20070605
  Transmission Date: 20071010
  Serious: Yes (Hospitalization, Other)
  Sender: FDA-Public Use
  Company Number: US-AMGEN-STX226189

PATIENT
  Sex: Male
  Weight: 88.5 kg

DRUGS (10)
  1. ENBREL [Suspect]
     Indication: RHEUMATOID ARTHRITIS
     Route: 058
     Dates: start: 20070313
  2. PREDNISONE TAB [Concomitant]
  3. TOPROL-XL [Concomitant]
  4. HYDROCODONE BITARTRATE [Concomitant]
  5. TIMOLOL MALEATE [Concomitant]
     Route: 047
  6. ALEVE [Concomitant]
  7. TYLENOL [Concomitant]
  8. WELCHOL [Concomitant]
  9. FISH OIL [Concomitant]
  10. ZETIA [Concomitant]

REACTIONS (7)
  - BRONCHITIS [None]
  - CATARACT [None]
  - CHRONIC OBSTRUCTIVE PULMONARY DISEASE [None]
  - DYSPHONIA [None]
  - HYPERGLYCAEMIA [None]
  - MALAISE [None]
  - PNEUMONIA [None]
